FAERS Safety Report 12059398 (Version 4)
Quarter: 2016Q1

REPORT INFORMATION
  Report Type: Spontaneous
  Country: US (occurrence: US)
  Receive Date: 20160210
  Receipt Date: 20160229
  Transmission Date: 20160526
  Serious: Yes (Death)
  Sender: FDA-Public Use
  Company Number: US-ACTAVIS-2016-02631

PATIENT
  Age: 44 Year
  Sex: Female

DRUGS (4)
  1. DIPHENHYDRAMINE (WATSON LABORATORIES) [Suspect]
     Active Substance: DIPHENHYDRAMINE
     Indication: COMPLETED SUICIDE
     Dosage: UNKNOWN
     Route: 048
  2. TOPIRAMATE (WATSON LABORATORIES) [Suspect]
     Active Substance: TOPIRAMATE
     Indication: COMPLETED SUICIDE
     Dosage: UNKNOWN
     Route: 048
  3. QUETIAPINE (AGPTC) [Suspect]
     Active Substance: QUETIAPINE
     Indication: COMPLETED SUICIDE
     Dosage: UNKNOWN
     Route: 048
  4. FLUORIDE                           /00168201/ [Suspect]
     Active Substance: SODIUM FLUORIDE
     Indication: COMPLETED SUICIDE
     Dosage: UNKNOWN
     Route: 048

REACTIONS (2)
  - Toxicity to various agents [Fatal]
  - Completed suicide [Fatal]
